FAERS Safety Report 13776766 (Version 1)
Quarter: 2017Q3

REPORT INFORMATION
  Report Type: Report from Study
  Country: ZA (occurrence: ZA)
  Receive Date: 20170720
  Receipt Date: 20170720
  Transmission Date: 20171127
  Serious: Yes (Hospitalization)
  Sender: FDA-Public Use
  Company Number: ZA-EMD SERONO-8115876

PATIENT
  Age: 29 Year
  Sex: Male

DRUGS (1)
  1. REBIF [Suspect]
     Active Substance: INTERFERON BETA-1A
     Indication: MULTIPLE SCLEROSIS
     Dates: start: 20160915, end: 2017

REACTIONS (6)
  - Hemiparesis [Recovering/Resolving]
  - Feeling abnormal [Unknown]
  - Gait disturbance [Not Recovered/Not Resolved]
  - Gait inability [Unknown]
  - Hypoaesthesia [Not Recovered/Not Resolved]
  - Pain [Unknown]

NARRATIVE: CASE EVENT DATE: 20161022
